FAERS Safety Report 6875428-0 (Version None)
Quarter: 2010Q3

REPORT INFORMATION
  Report Type: 
  Country: None (occurrence: None)
  Receive Date: 20100727
  Receipt Date: 20070712
  Transmission Date: 20110219
  Serious: Yes (Death, Hospitalization, Other)
  Sender: FDA-Public Use
  Company Number: US-PFIZER INC-2006150316

PATIENT
  Sex: Male
  Weight: 71.7 kg

DRUGS (9)
  1. CELEBREX [Suspect]
     Indication: ARTHRITIS
     Route: 048
     Dates: start: 20020701, end: 20020922
  2. CELEBREX [Suspect]
     Indication: PAIN
  3. VIOXX [Suspect]
     Indication: ARTHRITIS
     Route: 048
     Dates: start: 20010323, end: 20020922
  4. VIOXX [Suspect]
     Indication: PAIN
  5. ACETYLSALICYLIC ACID SRT [Concomitant]
     Dates: start: 20010912, end: 20020922
  6. LOVASTATIN [Concomitant]
     Indication: BLOOD CHOLESTEROL INCREASED
     Dates: start: 20010912, end: 20020922
  7. LISINOPRIL [Concomitant]
     Indication: HYPERTENSION
     Dates: start: 20010323, end: 20020922
  8. METOPROLOL SUCCINATE [Concomitant]
     Indication: HYPERTENSION
     Dates: start: 20010912, end: 20020922
  9. DIGOXIN [Concomitant]
     Indication: CARDIAC DISORDER
     Dates: start: 20011211, end: 20020922

REACTIONS (3)
  - CARDIAC FAILURE CONGESTIVE [None]
  - CEREBROVASCULAR ACCIDENT [None]
  - MYOCARDIAL INFARCTION [None]
